FAERS Safety Report 12928207 (Version 2)
Quarter: 2016Q4

REPORT INFORMATION
  Report Type: Spontaneous
  Country: US (occurrence: US)
  Receive Date: 20161110
  Receipt Date: 20161129
  Transmission Date: 20170207
  Serious: No
  Sender: FDA-Public Use
  Company Number: US-B.I. PHARMACEUTICALS,INC./RIDGEFIELD-2016-BI-072604

PATIENT
  Sex: Female

DRUGS (3)
  1. COMBIVENT [Suspect]
     Active Substance: ALBUTEROL SULFATE\IPRATROPIUM BROMIDE
     Dosage: 1 PUFF 4 TIMES A DAY;  FORM STRENGTH: 20 MCG / 100 MCG
     Route: 055
     Dates: start: 2011, end: 201602
  2. COMBIVENT [Suspect]
     Active Substance: ALBUTEROL SULFATE\IPRATROPIUM BROMIDE
     Indication: ASTHMA
     Dosage: FORM STRENGTH: 20 MCG / 100 MCG; UNIT DOSE: 40MCG/200MCG; DAILY DOSE: 160MCG/800MCG; 2 PUFFS 4 TIMES
     Route: 055
     Dates: start: 201602
  3. ALBUTEROL/IPRATROPIUM [Concomitant]
     Active Substance: ALBUTEROL\IPRATROPIUM
     Indication: DYSPNOEA
     Dosage: 1 DOSE EVERY 4 HOURS AS NEEDED
     Route: 055
     Dates: start: 2003

REACTIONS (5)
  - Pneumonia [Recovered/Resolved]
  - Off label use [Unknown]
  - Bronchitis [Recovered/Resolved]
  - Wheezing [Recovered/Resolved]
  - Medication error [Not Recovered/Not Resolved]

NARRATIVE: CASE EVENT DATE: 2011
